FAERS Safety Report 9540003 (Version 1)
Quarter: 2013Q2

REPORT INFORMATION
  Report Type: Spontaneous
  Country: US (occurrence: None)
  Receive Date: 20130524
  Receipt Date: 20130524
  Transmission Date: 20140414
  Serious: Yes (Hospitalization)
  Sender: FDA-Public Use
  Company Number: PHEH2013US002835

PATIENT
  Sex: Female

DRUGS (11)
  1. GILENYA (FINGOLIMOD) CAPSULE, 0.5MG [Suspect]
     Indication: MULTIPLE SCLEROSIS
     Route: 048
     Dates: start: 20110208
  2. MAXALT/NET/(RIZATRIPTAN) [Concomitant]
  3. CLONAZEPAM (CLONAZEPAM) (CLONAZEPAM) [Concomitant]
  4. CELEXA (CITALOPRAM HYDROBROMIDE) [Concomitant]
  5. TRAMADOL (TRAMADOL) [Concomitant]
  6. TOPAMAX (TOPIRAMATE) [Concomitant]
  7. LYRICA (PREGABALIN) [Concomitant]
  8. TIZANIDINE (TIZANIDINE) [Concomitant]
  9. OPANA (OXYMORPHONE HYDROCHLORIDE) [Concomitant]
  10. STIMATE (VASOPRESSIN) [Concomitant]
  11. NUVIGIL (ARMODAFINIL) [Concomitant]

REACTIONS (2)
  - Influenza [None]
  - Malaise [None]
